FAERS Safety Report 16594323 (Version 1)
Quarter: 2019Q3

REPORT INFORMATION
  Report Type: Spontaneous
  Country: IT (occurrence: IT)
  Receive Date: 20190718
  Receipt Date: 20190718
  Transmission Date: 20191004
  Serious: Yes (Hospitalization)
  Sender: FDA-Public Use
  Company Number: PHHY2019IT164774

PATIENT
  Age: 57 Year
  Sex: Male

DRUGS (3)
  1. AMLODIPINE [Suspect]
     Active Substance: AMLODIPINE BESYLATE
     Indication: DRUG ABUSE
     Dosage: 50 MG, UNK (TOTAL)
     Route: 048
     Dates: start: 20190512, end: 20190512
  2. ALMARYTM [Suspect]
     Active Substance: FLECAINIDE ACETATE
     Indication: DRUG ABUSE
     Dosage: 1 G, UNK (TOTAL)
     Route: 048
     Dates: start: 20190512, end: 20190512
  3. DELTACORTENE [Suspect]
     Active Substance: PREDNISONE
     Indication: DRUG ABUSE
     Dosage: 45 MG, UNK (TOTAL)
     Route: 048
     Dates: start: 20190512, end: 20190512

REACTIONS (3)
  - Sopor [Recovering/Resolving]
  - Drug abuse [Recovering/Resolving]
  - Vomiting [Recovering/Resolving]

NARRATIVE: CASE EVENT DATE: 20190512
